FAERS Safety Report 20107244 (Version 1)
Quarter: 2021Q4

REPORT INFORMATION
  Report Type: Spontaneous
  Country: PL (occurrence: PL)
  Receive Date: 20211124
  Receipt Date: 20211124
  Transmission Date: 20220304
  Serious: Yes (Hospitalization)
  Sender: FDA-Public Use
  Company Number: PL-ELI_LILLY_AND_COMPANY-PL202109012040

PATIENT
  Age: 61 Year
  Sex: Female

DRUGS (3)
  1. ABEMACICLIB [Suspect]
     Active Substance: ABEMACICLIB
     Indication: Breast cancer
     Dosage: 300 MG, DAILY
     Route: 065
     Dates: start: 202101
  2. ABEMACICLIB [Suspect]
     Active Substance: ABEMACICLIB
     Dosage: 200 UNK
     Route: 065
     Dates: start: 202103
  3. FULVESTRANT [Concomitant]
     Active Substance: FULVESTRANT
     Indication: Breast cancer
     Dosage: 500 MG, DAILY
     Route: 065
     Dates: start: 202101

REACTIONS (4)
  - COVID-19 [Unknown]
  - Asthenia [Unknown]
  - Diarrhoea [Unknown]
  - Alopecia [Unknown]

NARRATIVE: CASE EVENT DATE: 20210301
